FAERS Safety Report 16961687 (Version 1)
Quarter: 2019Q4

REPORT INFORMATION
  Report Type: Spontaneous
  Country: FR (occurrence: FR)
  Receive Date: 20191025
  Receipt Date: 20191025
  Transmission Date: 20200122
  Serious: Yes (Hospitalization)
  Sender: FDA-Public Use
  Company Number: FR-LEO PHARMA-326033

PATIENT
  Age: 70 Year
  Sex: Female
  Weight: 49 kg

DRUGS (7)
  1. PROTOPIC [Suspect]
     Active Substance: TACROLIMUS
     Indication: DERMATITIS ATOPIC
     Dosage: 0.1%
     Route: 003
     Dates: end: 20190913
  2. VITAMIN B6 [Concomitant]
     Active Substance: PYRIDOXINE HYDROCHLORIDE
     Indication: PRODUCT USED FOR UNKNOWN INDICATION
     Route: 048
  3. DUPIXENT [Suspect]
     Active Substance: DUPILUMAB
     Indication: DERMATITIS ATOPIC
     Dosage: 300 MG, INJECTABLE SOLUTION IN PRE-FILLED SYRINGE
     Route: 058
     Dates: start: 201904, end: 201908
  4. CLOBEX [Concomitant]
     Active Substance: CLOBETASOL PROPIONATE
     Indication: PRODUCT USED FOR UNKNOWN INDICATION
  5. VASELINE PURE [Concomitant]
     Active Substance: PETROLATUM
     Indication: PRODUCT USED FOR UNKNOWN INDICATION
     Route: 003
  6. LAROSCORBINE [Concomitant]
     Active Substance: ASCORBIC ACID
     Indication: PRODUCT USED FOR UNKNOWN INDICATION
     Dosage: 1 G, EFFERVESCENT TABLET
     Route: 048
  7. NICORETTE [Concomitant]
     Active Substance: NICOTINE
     Indication: PRODUCT USED FOR UNKNOWN INDICATION
     Dosage: 10 MG/16 H, TRANSDERMAL DEVICE
     Route: 062

REACTIONS (2)
  - Erythema [Recovered/Resolved]
  - Palmoplantar keratoderma [Recovered/Resolved]

NARRATIVE: CASE EVENT DATE: 20190903
